FAERS Safety Report 5593179-X (Version None)
Quarter: 2008Q1

REPORT INFORMATION
  Report Type: 
  Country: None (occurrence: None)
  Receive Date: 20080116
  Receipt Date: 20080103
  Transmission Date: 20080703
  Serious: Yes (Death, Other)
  Sender: FDA-Public Use
  Company Number: CH-AMGEN-US251214

PATIENT
  Age: 60 Year
  Sex: Female

DRUGS (16)
  1. ENBREL [Suspect]
     Indication: PSORIATIC ARTHROPATHY
     Route: 065
     Dates: start: 20060807, end: 20060831
  2. ENBREL [Suspect]
     Dates: start: 20070608, end: 20070915
  3. CALCIMAGON [Concomitant]
     Route: 065
  4. ACETAMINOPHEN AND TRAMADOL HCL [Concomitant]
     Route: 065
  5. MOVICOL [Concomitant]
     Route: 065
  6. LISINOPRIL [Concomitant]
     Route: 065
  7. PLAVIX [Concomitant]
     Route: 065
  8. ASPIRIN [Concomitant]
     Route: 065
  9. NEXIUM [Concomitant]
     Route: 065
  10. SORTIS [Concomitant]
     Route: 065
  11. METFORMIN HCL [Concomitant]
     Route: 065
  12. TRIMIN [Concomitant]
     Route: 065
  13. METOPROLOL SUCCINATE [Concomitant]
     Route: 065
  14. TRANXILIUM [Concomitant]
     Dosage: 1 DOSE EVERY 1 PRN
     Route: 065
  15. TORSEMIDE [Concomitant]
     Route: 065
  16. SPIRICORT [Concomitant]
     Dosage: 5 MG AND 2.5 MG PER DAY
     Route: 065

REACTIONS (3)
  - ACUTE CORONARY SYNDROME [None]
  - DEATH [None]
  - MYELODYSPLASTIC SYNDROME [None]
